FAERS Safety Report 11337113 (Version 6)
Quarter: 2016Q2

REPORT INFORMATION
  Report Type: Spontaneous
  Country: FR (occurrence: FR)
  Receive Date: 20150804
  Receipt Date: 20160614
  Transmission Date: 20160815
  Serious: Yes (Life-Threatening, Hospitalization, Disabling, Other)
  Sender: FDA-Public Use
  Company Number: PHHY2015FR091040

PATIENT
  Age: 80 Year
  Sex: Female
  Weight: 85 kg

DRUGS (2)
  1. CIPROFLOXACINE ACTAVIS//CIPROFLOXACIN HYDROCHLORIDE [Concomitant]
     Indication: PRODUCT USED FOR UNKNOWN INDICATION
     Dosage: 1 DF, BID
     Route: 065
     Dates: start: 20150213, end: 20150220
  2. AMOXICILLIN SANDOZ [Suspect]
     Active Substance: AMOXICILLIN
     Indication: BRONCHITIS
     Dosage: 1 G, BID
     Route: 048
     Dates: start: 20150213, end: 20150220

REACTIONS (2)
  - Toxic epidermal necrolysis [Recovered/Resolved with Sequelae]
  - Product substitution issue [Unknown]

NARRATIVE: CASE EVENT DATE: 20150220
